FAERS Safety Report 6424568-9 (Version None)
Quarter: 2009Q4

REPORT INFORMATION
  Report Type: 
  Country: None (occurrence: None)
  Receive Date: 20091103
  Receipt Date: 20091019
  Transmission Date: 20100525
  Serious: Yes (Other)
  Sender: FDA-Public Use
  Company Number: PHHY2008GB18082

PATIENT
  Sex: Female

DRUGS (3)
  1. CLOZARIL [Suspect]
     Indication: SCHIZOPHRENIA
     Dosage: 50 MG/DAY
     Dates: start: 20080804
  2. CLOZARIL [Suspect]
     Dosage: TITRATION
  3. DEPAKOTE [Concomitant]
     Indication: SCHIZOPHRENIA
     Dosage: 1500 MG/DAY
     Route: 048
     Dates: start: 20020101

REACTIONS (3)
  - DYSPNOEA [None]
  - OEDEMA PERIPHERAL [None]
  - ORTHOSTATIC HYPOTENSION [None]
